FAERS Safety Report 18272985 (Version 3)
Quarter: 2020Q4

REPORT INFORMATION
  Report Type: Spontaneous
  Country: US (occurrence: US)
  Receive Date: 20200916
  Receipt Date: 20201112
  Transmission Date: 20210113
  Serious: Yes (Other)
  Sender: FDA-Public Use
  Company Number: US-LUPIN PHARMACEUTICALS INC.-2020-00623

PATIENT
  Age: 42 Year
  Sex: Female

DRUGS (2)
  1. QUETIAPINE FUMARATE EXTENDED-RELEASE TABLETS, 400 MG [Suspect]
     Active Substance: QUETIAPINE FUMARATE
     Indication: PRODUCT USED FOR UNKNOWN INDICATION
     Dosage: 20 GRAM
     Route: 048
  2. DIVALPROEX SODIUM EXTENDED-RELEASE TABLETS USP 500 MG [Suspect]
     Active Substance: DIVALPROEX SODIUM
     Indication: PRODUCT USED FOR UNKNOWN INDICATION
     Dosage: 26 GRAM
     Route: 048

REACTIONS (5)
  - Respiratory distress [Unknown]
  - Intentional overdose [Unknown]
  - Tachycardia [Unknown]
  - Toxicity to various agents [Unknown]
  - Suicide attempt [Unknown]
